FAERS Safety Report 12398872 (Version 2)
Quarter: 2016Q2

REPORT INFORMATION
  Report Type: Report from Study
  Country: US (occurrence: US)
  Receive Date: 20160524
  Receipt Date: 20160525
  Transmission Date: 20160815
  Serious: Yes (Hospitalization, Other)
  Sender: FDA-Public Use
  Company Number: PHEH2016US012436

PATIENT
  Sex: Female

DRUGS (2)
  1. AMLODIPINE [Suspect]
     Active Substance: AMLODIPINE BESYLATE
     Indication: PRODUCT USED FOR UNKNOWN INDICATION
     Dosage: 20 MG, UNK
     Route: 065
  2. VALSARTAN. [Suspect]
     Active Substance: VALSARTAN
     Indication: PRODUCT USED FOR UNKNOWN INDICATION
     Dosage: 320 MG, UNK
     Route: 065

REACTIONS (7)
  - Blood pressure inadequately controlled [Unknown]
  - Blood pressure fluctuation [Unknown]
  - Drug ineffective [Unknown]
  - Pneumonia [Unknown]
  - Tachycardia [Unknown]
  - Blood pressure increased [Unknown]
  - Chest discomfort [Unknown]
